FAERS Safety Report 11571297 (Version 1)
Quarter: 2015Q3

REPORT INFORMATION
  Report Type: Spontaneous
  Country: US (occurrence: US)
  Receive Date: 20150929
  Receipt Date: 20150929
  Transmission Date: 20151125
  Serious: No
  Sender: FDA-Public Use
  Company Number: US-BANPHARM-20143160

PATIENT
  Age: 51 Year
  Sex: Male
  Weight: 72.57 kg

DRUGS (7)
  1. OYSTER-D [Concomitant]
  2. VITAMIN E [Concomitant]
     Active Substance: .ALPHA.-TOCOPHEROL
  3. DIVALPROEX [Concomitant]
     Active Substance: DIVALPROEX SODIUM
  4. LEVETIRACETAM. [Concomitant]
     Active Substance: LEVETIRACETAM
  5. VALIUM 10 MG [Concomitant]
  6. PROPANOLOL [Concomitant]
     Active Substance: PROPRANOLOL HYDROCHLORIDE
  7. LOPERAMIDE HCL [Suspect]
     Active Substance: LOPERAMIDE HYDROCHLORIDE
     Dosage: ONCE,

REACTIONS (3)
  - Somnolence [Recovered/Resolved]
  - Fatigue [Recovered/Resolved]
  - Accidental exposure to product [Unknown]
